FAERS Safety Report 6139271-2 (Version None)
Quarter: 2009Q2

REPORT INFORMATION
  Report Type: 
  Country: None (occurrence: None)
  Receive Date: 20090401
  Receipt Date: 20090324
  Transmission Date: 20091009
  Serious: Yes (Other)
  Sender: FDA-Public Use
  Company Number: US-BIOGENIDEC-2009BI009558

PATIENT
  Age: 34 Year
  Sex: Female
  Weight: 81 kg

DRUGS (5)
  1. TYSABRI [Suspect]
     Indication: MULTIPLE SCLEROSIS
     Route: 042
     Dates: start: 20081001
  2. TOPAMAX [Concomitant]
     Indication: CONVULSION
     Dates: start: 19990101
  3. CYMBALTA [Concomitant]
     Indication: CONVULSION
     Dates: start: 19990101
  4. LYRICA [Concomitant]
     Indication: CONVULSION
     Dates: start: 19990101
  5. KEPPRA [Concomitant]
     Indication: CONVULSION
     Dates: start: 19990101

REACTIONS (3)
  - CONVULSION [None]
  - FATIGUE [None]
  - PAIN IN EXTREMITY [None]
